FAERS Safety Report 19865994 (Version 2)
Quarter: 2021Q3

REPORT INFORMATION
  Report Type: Spontaneous
  Country: PT (occurrence: PT)
  Receive Date: 20210921
  Receipt Date: 20210930
  Transmission Date: 20211014
  Serious: Yes (Hospitalization)
  Sender: FDA-Public Use
  Company Number: PT-MYLANLABS-2021M1063769

PATIENT
  Age: 65 Year
  Sex: Male
  Weight: 85 kg

DRUGS (3)
  1. CLOPIDOGREL [Concomitant]
     Active Substance: CLOPIDOGREL BISULFATE
     Dosage: UNK
     Route: 048
  2. PIPERACILLIN/TAZOBACTAM [Suspect]
     Active Substance: PIPERACILLIN SODIUM\TAZOBACTAM SODIUM
     Indication: PRODUCT USED FOR UNKNOWN INDICATION
     Dosage: UNK(6/6H)
     Route: 042
     Dates: start: 20210327, end: 20210405
  3. COMIRNATY [Suspect]
     Active Substance: TOZINAMERAN
     Indication: COVID-19 IMMUNISATION
     Dosage: 0.3 MILLILITER (SINGLE ADMINISTRATION)
     Route: 030
     Dates: start: 20210317

REACTIONS (4)
  - Venous thrombosis [Recovered/Resolved]
  - Vasculitis [Recovered/Resolved]
  - Pulmonary embolism [Recovered/Resolved]
  - Purpura [Recovering/Resolving]

NARRATIVE: CASE EVENT DATE: 20210327
